FAERS Safety Report 6931224-7 (Version None)
Quarter: 2010Q3

REPORT INFORMATION
  Report Type: 
  Country: None (occurrence: None)
  Receive Date: 20100816
  Receipt Date: 20070816
  Transmission Date: 20110219
  Serious: Yes (Disabling)
  Sender: FDA-Public Use
  Company Number: LOC-00725

PATIENT
  Age: 21 Year
  Sex: Male

DRUGS (2)
  1. LOCOID [Suspect]
     Indication: DERMATITIS ATOPIC
     Dosage: TRANSDERMAL
     Route: 062
     Dates: end: 20040701
  2. RINDERON-VG (BETAMETHASONE VALERAT,GENTAMICIN SULFATE) [Concomitant]

REACTIONS (3)
  - GLAUCOMA [None]
  - OPTIC ATROPHY [None]
  - VISUAL ACUITY REDUCED [None]
